FAERS Safety Report 9603166 (Version 1)
Quarter: 2013Q4

REPORT INFORMATION
  Report Type: Spontaneous
  Country: BR (occurrence: BR)
  Receive Date: 20131007
  Receipt Date: 20131007
  Transmission Date: 20140711
  Serious: Yes (Life-Threatening, Hospitalization)
  Sender: FDA-Public Use
  Company Number: PHHY2013BR108947

PATIENT
  Age: 57 Year
  Sex: Female
  Weight: 70 kg

DRUGS (5)
  1. MIRTAZAPIN HEXAL [Suspect]
     Indication: ANXIETY
     Dosage: 30 MG, QD
     Route: 048
     Dates: start: 20130903, end: 20130915
  2. MIRTAZAPIN HEXAL [Suspect]
     Indication: BRUXISM
  3. SYNTHROID [Concomitant]
     Indication: HYPOTHYROIDISM
     Dosage: UNK QD
  4. DIOVAN [Concomitant]
     Indication: BLOOD PRESSURE
     Dosage: UNK, QD
  5. CLORANA [Concomitant]
     Indication: DIURETIC THERAPY
     Dosage: UNK, QD

REACTIONS (9)
  - Feeling abnormal [Recovering/Resolving]
  - Hypersensitivity [Recovering/Resolving]
  - Condition aggravated [Recovering/Resolving]
  - Pain in jaw [Recovering/Resolving]
  - Pain in extremity [Recovering/Resolving]
  - Urticaria [Recovering/Resolving]
  - Erythema [Recovering/Resolving]
  - Swelling face [Recovering/Resolving]
  - Anxiety [Recovering/Resolving]
